FAERS Safety Report 14155353 (Version 2)
Quarter: 2017Q4

REPORT INFORMATION
  Report Type: Spontaneous
  Country: US (occurrence: US)
  Receive Date: 20171103
  Receipt Date: 20171228
  Transmission Date: 20180321
  Serious: Yes (Other)
  Sender: FDA-Public Use
  Company Number: US-ASTRAZENECA-2017SF11255

PATIENT
  Age: 15768 Day
  Sex: Male

DRUGS (2)
  1. PRILOSEC OTC [Suspect]
     Active Substance: OMEPRAZOLE MAGNESIUM
     Indication: PEPTIC ULCER
     Route: 048
     Dates: start: 201305
  2. PRILOSEC OTC [Suspect]
     Active Substance: OMEPRAZOLE MAGNESIUM
     Indication: PEPTIC ULCER
     Route: 048
     Dates: start: 201104, end: 201305

REACTIONS (1)
  - Chronic kidney disease [Not Recovered/Not Resolved]

NARRATIVE: CASE EVENT DATE: 20141124
